FAERS Safety Report 6342520-9 (Version None)
Quarter: 2009Q3

REPORT INFORMATION
  Report Type: 
  Country: None (occurrence: None)
  Receive Date: 20090908
  Receipt Date: 20051114
  Transmission Date: 20100115
  Serious: No
  Sender: FDA-Public Use
  Company Number: JP-ROCHE-425335

PATIENT

DRUGS (1)
  1. TAMIFLU [Suspect]
     Indication: DRUG USE FOR UNKNOWN INDICATION

REACTIONS (2)
  - DRUG EXPOSURE DURING PREGNANCY [None]
  - NORMAL NEWBORN [None]
